FAERS Safety Report 11625959 (Version 1)
Quarter: 2015Q4

REPORT INFORMATION
  Report Type: Report from Study
  Country: US (occurrence: US)
  Receive Date: 20151013
  Receipt Date: 20151013
  Transmission Date: 20160304
  Serious: Yes (Hospitalization, Other)
  Sender: FDA-Public Use
  Company Number: US-ASTELLAS-2015US037269

PATIENT
  Sex: Female

DRUGS (2)
  1. BABY ASPIRIN [Concomitant]
     Active Substance: ASPIRIN
     Indication: PRODUCT USED FOR UNKNOWN INDICATION
     Dosage: UNK UNK, UNKNOWN FREQ.
     Route: 065
  2. ERLOTINIB [Suspect]
     Active Substance: ERLOTINIB
     Indication: LUNG NEOPLASM MALIGNANT
     Dosage: 150 MG, ONCE A DAY
     Route: 048
     Dates: end: 201402

REACTIONS (13)
  - Balance disorder [Unknown]
  - Abasia [Unknown]
  - Malaise [Unknown]
  - Feeling abnormal [Unknown]
  - Diarrhoea [Unknown]
  - Vomiting [Unknown]
  - Rash [Unknown]
  - Pyrexia [Unknown]
  - Weight decreased [Recovering/Resolving]
  - Drug hypersensitivity [Unknown]
  - Dizziness [Unknown]
  - Blood pressure fluctuation [Unknown]
  - Eye swelling [Unknown]
